FAERS Safety Report 17691768 (Version 2)
Quarter: 2020Q2

REPORT INFORMATION
  Report Type: Spontaneous
  Country: NZ (occurrence: NZ)
  Receive Date: 20200422
  Receipt Date: 20200429
  Transmission Date: 20200714
  Serious: Yes (Other)
  Sender: FDA-Public Use
  Company Number: NZ-ABBVIE-20K-118-3365480-00

PATIENT
  Age: 44 Year
  Sex: Male
  Weight: 81 kg

DRUGS (3)
  1. PEMBROLIZUMAB. [Concomitant]
     Active Substance: PEMBROLIZUMAB
     Indication: PRODUCT USED FOR UNKNOWN INDICATION
     Dates: start: 202003
  2. ADALIMUMAB [Suspect]
     Active Substance: ADALIMUMAB
     Indication: PRODUCT USED FOR UNKNOWN INDICATION
     Route: 058
     Dates: start: 20120201, end: 20200131
  3. CYCLOSPORINE. [Suspect]
     Active Substance: CYCLOSPORINE
     Indication: PRODUCT USED FOR UNKNOWN INDICATION
     Route: 065
     Dates: start: 201011, end: 201112

REACTIONS (7)
  - Metastatic malignant melanoma [Not Recovered/Not Resolved]
  - Central nervous system lesion [Unknown]
  - Cerebral haemorrhage [Unknown]
  - Brain oedema [Unknown]
  - Pulmonary hilum mass [Unknown]
  - Pulmonary mass [Unknown]
  - Cough [Unknown]

NARRATIVE: CASE EVENT DATE: 201305
